FAERS Safety Report 19957992 (Version 1)
Quarter: 2021Q4

REPORT INFORMATION
  Report Type: Report from Study
  Country: TW (occurrence: TW)
  Receive Date: 20211015
  Receipt Date: 20211015
  Transmission Date: 20220303
  Serious: Yes (Death, Other)
  Sender: FDA-Public Use
  Company Number: TW-BOEHRINGERINGELHEIM-2021-BI-132565

PATIENT
  Age: 49 Year
  Sex: Female
  Weight: 68.8 kg

DRUGS (2)
  1. PRADAXA [Suspect]
     Active Substance: DABIGATRAN ETEXILATE MESYLATE
     Indication: Atrial fibrillation
     Dosage: 110MG BID
     Route: 048
     Dates: start: 20210707, end: 20210808
  2. VALSARTAN [Concomitant]
     Active Substance: VALSARTAN
     Indication: Hypertension
     Route: 048
     Dates: start: 20210721, end: 20210808

REACTIONS (1)
  - Cerebrovascular accident [Fatal]

NARRATIVE: CASE EVENT DATE: 20210808
